FAERS Safety Report 15144627 (Version 1)
Quarter: 2018Q3

REPORT INFORMATION
  Report Type: Spontaneous
  Country: US (occurrence: US)
  Receive Date: 20180618
  Receipt Date: 20180618
  Transmission Date: 20181010
  Serious: No
  Sender: FDA-Public Use
  Company Number: None

PATIENT
  Age: 66 Year
  Sex: Female

DRUGS (1)
  1. SUTENT [Suspect]
     Active Substance: SUNITINIB MALATE
     Dates: start: 20180604, end: 20180618

REACTIONS (3)
  - Oral discomfort [None]
  - Oral pain [None]
  - Tongue discomfort [None]

NARRATIVE: CASE EVENT DATE: 20180611
